FAERS Safety Report 11148728 (Version 2)
Quarter: 2016Q1

REPORT INFORMATION
  Report Type: Spontaneous
  Country: US (occurrence: US)
  Receive Date: 20150529
  Receipt Date: 20160323
  Transmission Date: 20160525
  Serious: No
  Sender: FDA-Public Use
  Company Number: US-PFIZER INC-2015180002

PATIENT
  Age: 33 Year
  Sex: Male

DRUGS (2)
  1. HYDROCODONE [Suspect]
     Active Substance: HYDROCODONE
     Dosage: UNK
  2. CHANTIX [Suspect]
     Active Substance: VARENICLINE TARTRATE
     Dosage: UNK

REACTIONS (1)
  - Drug hypersensitivity [Unknown]
